FAERS Safety Report 9142858 (Version 1)
Quarter: 2013Q1

REPORT INFORMATION
  Report Type: Spontaneous
  Country: US (occurrence: US)
  Receive Date: 20130306
  Receipt Date: 20130306
  Transmission Date: 20140127
  Serious: Yes (Other)
  Sender: FDA-Public Use
  Company Number: US-ELI_LILLY_AND_COMPANY-US201302009259

PATIENT
  Sex: Male

DRUGS (5)
  1. CIALIS [Suspect]
     Indication: BENIGN PROSTATIC HYPERPLASIA
     Dosage: 5 MG, QD
     Dates: start: 2012, end: 20130224
  2. ATORVASTATIN [Concomitant]
     Dosage: UNK
  3. CLOPIDOGREL [Concomitant]
     Dosage: UNK
  4. LOSARTAN [Concomitant]
     Dosage: UNK
  5. METOPROLOL [Concomitant]
     Dosage: UNK

REACTIONS (2)
  - Vision blurred [Recovered/Resolved]
  - Drug ineffective [Unknown]
